FAERS Safety Report 15677837 (Version 5)
Quarter: 2025Q4

REPORT INFORMATION
  Report Type: Spontaneous
  Country: CA (occurrence: CA)
  Receive Date: 20181130
  Receipt Date: 20251204
  Transmission Date: 20260117
  Serious: Yes (Death, Hospitalization, Other)
  Sender: NOVARTIS
  Company Number: PHHY2018CA170209

PATIENT
  Age: 67 Year
  Sex: Female

DRUGS (5)
  1. ELTROMBOPAG [Suspect]
     Active Substance: ELTROMBOPAG
     Indication: Product used for unknown indication
     Route: 065
  2. METHOTREXATE [Suspect]
     Active Substance: METHOTREXATE
     Indication: Psoriatic arthropathy
     Dosage: 25 MG, UNK
     Route: 065
     Dates: start: 2013, end: 201807
  3. XELJANZ [Suspect]
     Active Substance: TOFACITINIB CITRATE
     Indication: Pancytopenia
     Dosage: UNK
     Route: 065
     Dates: start: 20180614
  4. ZOSTAVAX [Concomitant]
     Active Substance: VARICELLA-ZOSTER VIRUS STRAIN OKA/MERCK LIVE ANTIGEN
     Indication: Product used for unknown indication
     Dosage: UNK
     Route: 065
  5. NEUPOGEN [Concomitant]
     Active Substance: FILGRASTIM
     Indication: Product used for unknown indication
     Route: 065

REACTIONS (12)
  - Sepsis [Fatal]
  - Enterococcal infection [Fatal]
  - Myelosuppression [Fatal]
  - Pancytopenia [Fatal]
  - General physical health deterioration [Not Recovered/Not Resolved]
  - Urinary tract disorder [Not Recovered/Not Resolved]
  - Bone marrow failure [Unknown]
  - Febrile neutropenia [Unknown]
  - Infection [Unknown]
  - Neutrophil count decreased [Unknown]
  - Pneumonia [Unknown]
  - Abscess [Unknown]

NARRATIVE: CASE EVENT DATE: 20180701
